FAERS Safety Report 14695470 (Version 3)
Quarter: 2018Q2

REPORT INFORMATION
  Report Type: Spontaneous
  Country: JP (occurrence: JP)
  Receive Date: 20180329
  Receipt Date: 20180406
  Transmission Date: 20180711
  Serious: Yes (Death, Other)
  Sender: FDA-Public Use
  Company Number: JP-BAYER-2018-061606

PATIENT
  Age: 95 Year
  Sex: Female
  Weight: 47 kg

DRUGS (7)
  1. RISPERIDONE. [Concomitant]
     Active Substance: RISPERIDONE
     Indication: DELIRIUM
     Dosage: DAILY DOSE 1 MG
     Dates: start: 20170726, end: 20170801
  2. NEXIUM [Concomitant]
     Active Substance: ESOMEPRAZOLE MAGNESIUM
     Indication: PROPHYLAXIS AGAINST GASTROINTESTINAL ULCER
     Dosage: DAILY DOSE 20 MG
     Dates: start: 20170725, end: 20170801
  3. BAYASPIRIN 100 MG [Suspect]
     Active Substance: ASPIRIN
     Indication: CEREBRAL INFARCTION
  4. MEMANTINE HYDROCHLORIDE. [Concomitant]
     Active Substance: MEMANTINE HYDROCHLORIDE
     Indication: DEMENTIA
     Dosage: DAILY DOSE 20 MG
     Dates: start: 20170726, end: 20170801
  5. ALFACALCIDOL [Concomitant]
     Active Substance: ALFACALCIDOL
     Indication: OSTEOPOROSIS
     Dosage: DAILY DOSE 0.25 ?G
     Dates: start: 20170726, end: 20170801
  6. AZILSARTAN [Concomitant]
     Active Substance: AZILSARTAN KAMEDOXOMIL
     Indication: HYPERTENSION
     Dosage: DAILY DOSE 20 MG
     Dates: start: 20170726, end: 20170801
  7. BAYASPIRIN 100 MG [Suspect]
     Active Substance: ASPIRIN
     Indication: CEREBRAL ISCHAEMIA
     Dosage: DAILY DOSE 200 MG
     Dates: start: 20170725, end: 20170728

REACTIONS (4)
  - Cerebral microhaemorrhage [Unknown]
  - Cerebral haemorrhage [Fatal]
  - Altered state of consciousness [Fatal]
  - Pupils unequal [Fatal]

NARRATIVE: CASE EVENT DATE: 20170730
